FAERS Safety Report 8418430-X (Version None)
Quarter: 2012Q2

REPORT INFORMATION
  Report Type: 
  Country: None (occurrence: None)
  Receive Date: 20120607
  Receipt Date: 20120601
  Transmission Date: 20120825
  Serious: Yes (Other)
  Sender: FDA-Public Use
  Company Number: US-PFIZER INC-2012132656

PATIENT
  Sex: Male

DRUGS (4)
  1. DETROL [Suspect]
     Dosage: 2 MG, 2X/DAY
     Route: 048
  2. DETROL [Suspect]
     Indication: BLADDER SPASM
     Dosage: UNK
     Route: 048
  3. DETROL LA [Suspect]
     Indication: BLADDER SPASM
     Dosage: 2 MG, 1X/DAY
     Route: 048
  4. BENICAR [Suspect]
     Dosage: UNK
     Dates: start: 20110401

REACTIONS (3)
  - SUICIDAL IDEATION [None]
  - MYALGIA [None]
  - IMMOBILE [None]
